FAERS Safety Report 17153158 (Version 1)
Quarter: 2019Q4

REPORT INFORMATION
  Report Type: Spontaneous
  Country: US (occurrence: US)
  Receive Date: 20191213
  Receipt Date: 20191213
  Transmission Date: 20200122
  Serious: No
  Sender: FDA-Public Use
  Company Number: US-INCYTE CORPORATION-2019IN012182

PATIENT

DRUGS (1)
  1. JAKAFI [Suspect]
     Active Substance: RUXOLITINIB
     Indication: GRAFT VERSUS HOST DISEASE
     Dosage: 5 MILLIGRAM, BID
     Route: 048
     Dates: start: 20180803

REACTIONS (7)
  - Off label use [Unknown]
  - Weight increased [Unknown]
  - Product dose omission [Unknown]
  - Myalgia [Unknown]
  - Asthenia [Unknown]
  - Bronchitis [Unknown]
  - Arthralgia [Unknown]
